FAERS Safety Report 7121278-X (Version None)
Quarter: 2010Q4

REPORT INFORMATION
  Report Type: 
  Country: None (occurrence: None)
  Receive Date: 20101124
  Receipt Date: 20101118
  Transmission Date: 20110411
  Serious: Yes (Hospitalization, Other)
  Sender: FDA-Public Use
  Company Number: US-PURDUE-USA-2010-0048826

PATIENT
  Sex: Male
  Weight: 94.331 kg

DRUGS (1)
  1. OXYCONTIN [Suspect]
     Indication: SICKLE CELL ANAEMIA
     Dosage: 100 MG, TID
     Route: 048

REACTIONS (4)
  - CARDIAC FLUTTER [None]
  - DRUG INEFFECTIVE [None]
  - INADEQUATE ANALGESIA [None]
  - PALPITATIONS [None]
